FAERS Safety Report 14734024 (Version 3)
Quarter: 2018Q2

REPORT INFORMATION
  Report Type: Spontaneous
  Country: FR (occurrence: FR)
  Receive Date: 20180409
  Receipt Date: 20180424
  Transmission Date: 20180711
  Serious: Yes (Other)
  Sender: FDA-Public Use
  Company Number: FR-AUROBINDO-AUR-APL-2018-019141

PATIENT
  Age: 57 Year
  Sex: Male

DRUGS (16)
  1. KETOROLAC [Concomitant]
     Active Substance: KETOROLAC\KETOROLAC TROMETHAMINE
     Indication: BONE PAIN
  2. ONDANSETRON [Concomitant]
     Active Substance: ONDANSETRON
     Indication: PROPHYLAXIS
     Dosage: 24 MG, SINGLE ; IN TOTAL
     Route: 042
     Dates: start: 20161206, end: 20161206
  3. MASITINIB [Suspect]
     Active Substance: MASITINIB
     Indication: PRODUCT USED FOR UNKNOWN INDICATION
     Dosage: 600 MG, DAILY(5.71 MG/KG/DAY)
     Route: 065
     Dates: start: 20161206, end: 20161208
  4. KETOROLAC [Concomitant]
     Active Substance: KETOROLAC\KETOROLAC TROMETHAMINE
     Indication: PAIN
  5. DEXAMETHASONE. [Concomitant]
     Active Substance: DEXAMETHASONE
     Indication: PROPHYLAXIS
     Dosage: 20 MG, SINGLE ; IN TOTAL
     Route: 042
     Dates: start: 20161206, end: 20161206
  6. MASITINIB [Suspect]
     Active Substance: MASITINIB
     Dosage: 600 MG, DAILY(5.71 MG/KG/DAY)
     Route: 065
     Dates: start: 20170131, end: 20170512
  7. PREDNISONE. [Suspect]
     Active Substance: PREDNISONE
     Indication: PRODUCT USED FOR UNKNOWN INDICATION
     Dosage: 10 MG, DAILY
     Route: 065
     Dates: start: 20161206, end: 20170515
  8. KETOROLAC [Concomitant]
     Active Substance: KETOROLAC\KETOROLAC TROMETHAMINE
     Indication: BONE PAIN
     Dosage: 1 DF, 2X/DAY
     Route: 048
     Dates: start: 20161211
  9. MORPHINE HYDROCHLORIDE [Concomitant]
     Active Substance: MORPHINE HYDROCHLORIDE
     Indication: BONE PAIN
     Dosage: 10 MILLIGRAM, ONCE A DAY
     Route: 042
     Dates: start: 20161211
  10. ONDANSETRON [Concomitant]
     Active Substance: ONDANSETRON
     Dosage: 24 MG, SINGLE ; IN TOTAL
     Route: 042
     Dates: start: 20161227, end: 20161227
  11. MORPHINE HYDROCHLORIDE [Concomitant]
     Active Substance: MORPHINE HYDROCHLORIDE
     Indication: PAIN
     Dosage: 20 MILLIGRAM, ONCE A DAY
     Route: 042
     Dates: end: 20161211
  12. DEXAMETHASONE. [Concomitant]
     Active Substance: DEXAMETHASONE
     Dosage: 20 MG, SINGLE ; IN TOTAL
     Route: 042
     Dates: start: 20161227, end: 20161227
  13. DOCETAXEL. [Suspect]
     Active Substance: DOCETAXEL
     Indication: PRODUCT USED FOR UNKNOWN INDICATION
     Dosage: 75 MG/M2, UNK
     Route: 041
     Dates: start: 20161206, end: 20170503
  14. MASITINIB [Suspect]
     Active Substance: MASITINIB
     Dosage: 600 MG, DAILY(5.71 MG/KG/DAY)
     Route: 065
     Dates: end: 20170124
  15. ONDANSETRON [Concomitant]
     Active Substance: ONDANSETRON
     Dosage: 24 MG, SINGLE ; IN TOTAL
     Route: 042
     Dates: start: 20170116, end: 20170116
  16. DEXAMETHASONE. [Concomitant]
     Active Substance: DEXAMETHASONE
     Dosage: 20 MG, SINGLE ; IN TOTAL
     Route: 042
     Dates: start: 20170116, end: 20170116

REACTIONS (2)
  - Second primary malignancy [Unknown]
  - Acute lymphocytic leukaemia [Unknown]

NARRATIVE: CASE EVENT DATE: 20170516
